FAERS Safety Report 9327269 (Version 1)
Quarter: 2013Q2

REPORT INFORMATION
  Report Type: Spontaneous
  Country: AU (occurrence: AU)
  Receive Date: 20130604
  Receipt Date: 20130604
  Transmission Date: 20140414
  Serious: Yes (Hospitalization)
  Sender: FDA-Public Use
  Company Number: PHHY2013AU054344

PATIENT
  Sex: Female

DRUGS (5)
  1. AMOXICILLIN TRIHYDRATE [Suspect]
     Dosage: 1.5 MG, QD
     Dates: start: 20130104, end: 20130130
  2. DOXYCYCLINE HYDROCHLORIDE [Suspect]
     Dosage: 100 MG, QD
     Dates: start: 20130104, end: 20130118
  3. METFORMIN [Suspect]
     Dosage: 2 G, UNK
     Dates: end: 20130130
  4. ACETYLSALICYLIC ACID [Suspect]
     Dosage: 100 MG, UNK
     Dates: end: 20130130
  5. ROXITHROMYCIN [Suspect]
     Dosage: 300 MG, UNK
     Dates: start: 20130122, end: 20130130

REACTIONS (3)
  - Acute hepatic failure [Not Recovered/Not Resolved]
  - Hepatitis [Not Recovered/Not Resolved]
  - Jaundice cholestatic [Not Recovered/Not Resolved]
